FAERS Safety Report 8829290 (Version 1)
Quarter: 2012Q4

REPORT INFORMATION
  Report Type: 
  Country: US (occurrence: US)
  Receive Date: 20121008
  Receipt Date: 20121008
  Transmission Date: 20130627
  Serious: Yes (Hospitalization, Other)
  Sender: FDA-Public Use
  Company Number: US-ROCHE-1136813

PATIENT
  Sex: Female

DRUGS (6)
  1. RITUXAN [Suspect]
     Indication: MYELODYSPLASTIC SYNDROME
     Route: 065
     Dates: start: 20000421
  2. RITUXAN [Suspect]
     Indication: WALDENSTROM^S MACROGLOBULINAEMIA
  3. RITUXAN [Suspect]
     Indication: OFF LABEL USE
  4. EPOGEN [Concomitant]
  5. VINCRISTINE [Concomitant]
  6. PREDNISONE [Concomitant]

REACTIONS (7)
  - Lung infiltration [Unknown]
  - Blindness [Unknown]
  - Neuropathy peripheral [Unknown]
  - Localised infection [Unknown]
  - Constipation [Unknown]
  - Contusion [Unknown]
  - Asthenia [Unknown]
